FAERS Safety Report 10488573 (Version 2)
Quarter: 2014Q4

REPORT INFORMATION
  Report Type: Spontaneous
  Country: US (occurrence: None)
  Receive Date: 20140930
  Receipt Date: 20141015
  Transmission Date: 20150528
  Serious: Yes (Hospitalization, Other)
  Sender: FDA-Public Use
  Company Number: 2014-US-012092

PATIENT
  Age: 32 Year
  Sex: Female
  Weight: 53.5 kg

DRUGS (2)
  1. XYREM [Suspect]
     Active Substance: SODIUM OXYBATE
     Indication: CATAPLEXY
     Route: 048
     Dates: start: 201309
  2. XYREM [Suspect]
     Active Substance: SODIUM OXYBATE
     Indication: NARCOLEPSY
     Route: 048
     Dates: start: 201309

REACTIONS (8)
  - Pneumonia [None]
  - Aspiration [None]
  - Skin odour abnormal [None]
  - Confusional state [None]
  - Accidental overdose [None]
  - Loss of consciousness [None]
  - Poor personal hygiene [None]
  - Depression [None]

NARRATIVE: CASE EVENT DATE: 201408
